FAERS Safety Report 6767699-6 (Version None)
Quarter: 2010Q2

REPORT INFORMATION
  Report Type: 
  Country: None (occurrence: None)
  Receive Date: 20100614
  Receipt Date: 20100607
  Transmission Date: 20101027
  Serious: Yes (Hospitalization)
  Sender: FDA-Public Use
  Company Number: JP-ROCHE-690780

PATIENT
  Sex: Female
  Weight: 40 kg

DRUGS (7)
  1. ACTEMRA [Suspect]
     Indication: RHEUMATOID ARTHRITIS
     Route: 041
     Dates: start: 20100112, end: 20100112
  2. ACTEMRA [Suspect]
     Route: 041
     Dates: start: 20100205
  3. NORVASC [Concomitant]
     Route: 048
     Dates: start: 20090504
  4. GASTER [Concomitant]
     Route: 048
     Dates: start: 20090504
  5. FUROSEMIDE [Concomitant]
     Route: 048
     Dates: start: 20090504
  6. RIFAMPICIN [Concomitant]
  7. ISONIAZID [Concomitant]

REACTIONS (1)
  - PULMONARY GRANULOMA [None]
